FAERS Safety Report 26196528 (Version 1)
Quarter: 2025Q4

REPORT INFORMATION
  Report Type: Spontaneous
  Country: US (occurrence: US)
  Receive Date: 20251224
  Receipt Date: 20251224
  Transmission Date: 20260118
  Serious: Yes (Death, Hospitalization, Other)
  Sender: ASCEND THERAPEUTICS US, LLC
  Company Number: US-Ascend Therapeutics US, LLC-2190551

PATIENT
  Age: 56 Year
  Sex: Male

DRUGS (3)
  1. ANDROGEL [Suspect]
     Active Substance: TESTOSTERONE
     Indication: Product used for unknown indication
  2. TESTOSTERONE [Suspect]
     Active Substance: TESTOSTERONE
  3. OXANDROLONE [Suspect]
     Active Substance: OXANDROLONE

REACTIONS (5)
  - Deep vein thrombosis [Fatal]
  - Polycythaemia [Fatal]
  - Ventricular tachyarrhythmia [Fatal]
  - Left ventricular hypertrophy [Fatal]
  - Coronary artery occlusion [Fatal]
